FAERS Safety Report 7227858-5 (Version None)
Quarter: 2011Q1

REPORT INFORMATION
  Report Type: 
  Country: None (occurrence: None)
  Receive Date: 20110114
  Receipt Date: 20110107
  Transmission Date: 20110831
  Serious: Yes (Death)
  Sender: FDA-Public Use
  Company Number: US-MERCK-1101USA00906

PATIENT
  Age: 27 Year
  Sex: Male

DRUGS (9)
  1. HYDRODIURIL [Suspect]
     Route: 048
  2. SINEMET [Suspect]
     Route: 048
  3. AMLODIPINE [Suspect]
     Route: 065
  4. DOXAZOSIN MESYLATE [Suspect]
     Route: 065
  5. QUETIAPINE FUMARATE [Suspect]
     Route: 065
  6. CLONAZEPAM [Suspect]
     Route: 065
  7. RISPERIDONE [Suspect]
     Route: 065
  8. FUROSEMIDE [Suspect]
     Route: 065
  9. IBUPROFEN [Suspect]
     Route: 065

REACTIONS (2)
  - OVERDOSE [None]
  - COMPLETED SUICIDE [None]
